FAERS Safety Report 7496515-2 (Version None)
Quarter: 2011Q2

REPORT INFORMATION
  Report Type: 
  Country: None (occurrence: None)
  Receive Date: 20110520
  Receipt Date: 20110520
  Transmission Date: 20111010
  Serious: Yes (Hospitalization)
  Sender: FDA-Public Use
  Company Number: None

PATIENT
  Age: 76 Year
  Sex: Male
  Weight: 82 kg

DRUGS (2)
  1. WARFARIN SODIUM [Suspect]
     Indication: ATRIAL FIBRILLATION
     Dosage: 2.5 MG HS PO
     Route: 048
     Dates: end: 20110215
  2. METHYLPREDNISOLONE [Suspect]
     Indication: ADRENAL INSUFFICIENCY
     Dates: start: 20110210

REACTIONS (2)
  - GASTROINTESTINAL HAEMORRHAGE [None]
  - INTERNATIONAL NORMALISED RATIO INCREASED [None]
